FAERS Safety Report 9665850 (Version 1)
Quarter: 2013Q4

REPORT INFORMATION
  Report Type: Spontaneous
  Country: US (occurrence: None)
  Receive Date: 20131101
  Receipt Date: 20131101
  Transmission Date: 20140711
  Serious: Yes (Disabling)
  Sender: FDA-Public Use
  Company Number: None

PATIENT
  Age: 32 Year
  Sex: Male
  Weight: 127.01 kg

DRUGS (1)
  1. ALBUTEROL SULFATE [Suspect]
     Indication: ASTHMA
     Dates: start: 20131011, end: 20131030

REACTIONS (4)
  - Cough [None]
  - Respiratory tract congestion [None]
  - Respiratory disorder [None]
  - Poor quality drug administered [None]
